FAERS Safety Report 7084761-1 (Version None)
Quarter: 2010Q4

REPORT INFORMATION
  Report Type: 
  Country: None (occurrence: None)
  Receive Date: 20101104
  Receipt Date: 20101020
  Transmission Date: 20110411
  Serious: Yes (Hospitalization)
  Sender: FDA-Public Use
  Company Number: EC-AMGEN-ECUSP2010001247

PATIENT

DRUGS (5)
  1. NEULASTIM [Suspect]
     Indication: NEUTROPENIA
     Dosage: 6 MG, Q3WK
     Route: 058
     Dates: start: 20101004, end: 20101004
  2. MABTHERA [Concomitant]
     Dosage: 600 MG, 3 TIMES/WK
     Route: 042
     Dates: start: 20100701
  3. CYCLOPHOSPHAMIDE [Concomitant]
     Dosage: UNK
     Route: 042
     Dates: start: 20100701
  4. VINCRISTINE [Concomitant]
     Dosage: UNK
     Route: 042
     Dates: start: 20100701
  5. DOXORUBICIN [Concomitant]
     Dosage: UNK
     Route: 042
     Dates: start: 20100701

REACTIONS (4)
  - CHILLS [None]
  - MYALGIA [None]
  - PYREXIA [None]
  - VIRAL INFECTION [None]
